FAERS Safety Report 24942156 (Version 1)
Quarter: 2025Q1

REPORT INFORMATION
  Report Type: Spontaneous
  Country: FR (occurrence: FR)
  Receive Date: 20250207
  Receipt Date: 20250207
  Transmission Date: 20250408
  Serious: Yes (Hospitalization)
  Sender: TEVA
  Company Number: None

PATIENT
  Age: 28 Year
  Sex: Male

DRUGS (5)
  1. CLOZAPINE [Suspect]
     Active Substance: CLOZAPINE
     Indication: Behaviour disorder
     Route: 048
     Dates: start: 20241213, end: 20241217
  2. OLANZAPINE [Suspect]
     Active Substance: OLANZAPINE
     Indication: Behaviour disorder
     Route: 048
     Dates: start: 20241213, end: 20241221
  3. DIAZEPAM [Concomitant]
     Active Substance: DIAZEPAM
     Indication: Product used for unknown indication
     Route: 065
  4. LOXAPINE SUCCINATE [Suspect]
     Active Substance: LOXAPINE SUCCINATE
     Indication: Behaviour disorder
     Route: 048
     Dates: start: 20241213, end: 20241222
  5. LOXAPINE SUCCINATE [Suspect]
     Active Substance: LOXAPINE SUCCINATE
     Indication: Behaviour disorder
     Route: 030
     Dates: start: 20241223, end: 20241223

REACTIONS (1)
  - Neuroleptic malignant syndrome [Recovered/Resolved]

NARRATIVE: CASE EVENT DATE: 20241216
